FAERS Safety Report 4554933-6 (Version None)
Quarter: 2005Q1

REPORT INFORMATION
  Report Type: 
  Country: None (occurrence: None)
  Receive Date: 20050114
  Receipt Date: 20041221
  Transmission Date: 20050727
  Serious: Yes (Death, Other)
  Sender: FDA-Public Use
  Company Number: 200410554BBE

PATIENT
  Age: 22 Year
  Sex: Male

DRUGS (3)
  1. KOATE [Suspect]
     Indication: FACTOR VIII DEFICIENCY
     Dates: start: 19820101
  2. IMMUNOGLOBULINS (IMMUNO)  (IMMUNOGLOBULINS) [Suspect]
  3. IMMUNOGLOBULINS (GADOR) (IMMUNOGLOBULINS) [Suspect]

REACTIONS (2)
  - HEPATITIS C [None]
  - HIV TEST POSITIVE [None]
